FAERS Safety Report 11308849 (Version 2)
Quarter: 2015Q3

REPORT INFORMATION
  Report Type: Other
  Country: US (occurrence: US)
  Receive Date: 20150724
  Receipt Date: 20150810
  Transmission Date: 20151125
  Serious: Yes (Other)
  Sender: FDA-Public Use
  Company Number: US-SHIRE-US201508315

PATIENT
  Age: 65 Year
  Sex: Female

DRUGS (2)
  1. CINRYZE [Suspect]
     Active Substance: HUMAN C1-ESTERASE INHIBITOR
     Indication: PROPHYLAXIS
  2. CINRYZE [Suspect]
     Active Substance: HUMAN C1-ESTERASE INHIBITOR
     Indication: HEREDITARY ANGIOEDEMA
     Dosage: 1000 UNITS, OTHER, TWICE WEEKLY
     Route: 042
     Dates: start: 20100719

REACTIONS (6)
  - Localised oedema [Recovered/Resolved]
  - Pharyngeal oedema [Recovered/Resolved]
  - Swelling face [Recovered/Resolved]
  - Product use issue [Unknown]
  - Hereditary angioedema [Recovered/Resolved]
  - Local swelling [Unknown]

NARRATIVE: CASE EVENT DATE: 2015
